FAERS Safety Report 10655081 (Version 1)
Quarter: 2014Q4

REPORT INFORMATION
  Report Type: Spontaneous
  Country: US (occurrence: US)
  Receive Date: 20141216
  Receipt Date: 20141216
  Transmission Date: 20150529
  Serious: Yes (Other)
  Sender: FDA-Public Use
  Company Number: US-SHIRE-US201408753

PATIENT
  Sex: Female
  Weight: 53 kg

DRUGS (8)
  1. VYVANSE [Suspect]
     Active Substance: LISDEXAMFETAMINE DIMESYLATE
     Indication: ATTENTION DEFICIT/HYPERACTIVITY DISORDER
     Dosage: UNK, UNKNOWN
     Route: 048
  2. NEURONTIN [Suspect]
     Active Substance: GABAPENTIN
     Dosage: 600 MG, UNKNOWN
     Route: 065
  3. NEURONTIN [Suspect]
     Active Substance: GABAPENTIN
     Dosage: 1200 MG, UNKNOWN
     Route: 065
  4. NEURONTIN [Suspect]
     Active Substance: GABAPENTIN
     Dosage: 2400 MG, UNKNOWN
     Route: 065
  5. NEURONTIN [Suspect]
     Active Substance: GABAPENTIN
     Dosage: 1800 MG, UNKNOWN
     Route: 048
  6. CYMBALTA [Suspect]
     Active Substance: DULOXETINE HYDROCHLORIDE
     Indication: PRODUCT USED FOR UNKNOWN INDICATION
     Dosage: UNK, UNKNOWN
     Route: 065
  7. NEURONTIN [Suspect]
     Active Substance: GABAPENTIN
     Dosage: 900 MG, UNKNOWN
     Route: 065
  8. NEURONTIN [Suspect]
     Active Substance: GABAPENTIN
     Indication: NEURALGIA
     Dosage: 300 MG, UNKNOWN
     Route: 065
     Dates: start: 2003

REACTIONS (16)
  - Condition aggravated [Unknown]
  - Brain injury [Recovering/Resolving]
  - Emotional distress [Unknown]
  - Distractibility [Unknown]
  - Cognitive disorder [Recovering/Resolving]
  - Confusional state [Recovering/Resolving]
  - Performance status decreased [Unknown]
  - Depression [Unknown]
  - Disturbance in attention [Unknown]
  - Back disorder [Unknown]
  - Personality change [Unknown]
  - Unevaluable event [Unknown]
  - Memory impairment [Recovering/Resolving]
  - Feeling abnormal [Unknown]
  - Therapeutic response unexpected [Not Recovered/Not Resolved]
  - Weight decreased [Unknown]
